FAERS Safety Report 23706989 (Version 3)
Quarter: 2024Q2

REPORT INFORMATION
  Report Type: Report from Study
  Country: CA (occurrence: CA)
  Receive Date: 20240404
  Receipt Date: 20240522
  Transmission Date: 20240715
  Serious: Yes (Hospitalization, Other)
  Sender: FDA-Public Use
  Company Number: CA-SAMSUNG BIOEPIS-SB-2024-08757

PATIENT
  Age: 25 Year
  Sex: Male
  Weight: 62.9 kg

DRUGS (9)
  1. RENFLEXIS [Suspect]
     Active Substance: INFLIXIMAB-ABDA
     Indication: Colitis ulcerative
     Route: 065
     Dates: start: 20210306
  2. RENFLEXIS [Suspect]
     Active Substance: INFLIXIMAB-ABDA
     Route: 065
     Dates: start: 20221207
  3. RENFLEXIS [Suspect]
     Active Substance: INFLIXIMAB-ABDA
     Route: 065
     Dates: start: 20240319
  4. RENFLEXIS [Suspect]
     Active Substance: INFLIXIMAB-ABDA
     Route: 042
     Dates: start: 20221207
  5. RENFLEXIS [Suspect]
     Active Substance: INFLIXIMAB-ABDA
     Route: 065
     Dates: start: 20210211
  6. RENFLEXIS [Suspect]
     Active Substance: INFLIXIMAB-ABDA
     Route: 042
     Dates: start: 20210306
  7. ASACOL [Concomitant]
     Active Substance: MESALAMINE
     Indication: Product used for unknown indication
     Route: 048
  8. IMURAN [Concomitant]
     Active Substance: AZATHIOPRINE
     Indication: Product used for unknown indication
     Route: 065
  9. PREDNISONE [Concomitant]
     Active Substance: PREDNISONE
     Indication: Product used for unknown indication
     Dosage: TAPER
     Dates: start: 202102

REACTIONS (15)
  - Adenocarcinoma pancreas [Not Recovered/Not Resolved]
  - Faeces discoloured [Unknown]
  - Chromaturia [Unknown]
  - Haematochezia [Not Recovered/Not Resolved]
  - Abdominal pain upper [Unknown]
  - Jaundice [Recovering/Resolving]
  - Diarrhoea [Unknown]
  - Melaena [Unknown]
  - Rectal haemorrhage [Unknown]
  - Fatigue [Recovering/Resolving]
  - Weight decreased [Unknown]
  - Biliary ischaemia [Not Recovered/Not Resolved]
  - Cholangiocarcinoma [Not Recovered/Not Resolved]
  - Inappropriate schedule of product administration [Unknown]
  - Off label use [Unknown]

NARRATIVE: CASE EVENT DATE: 20240316
